FAERS Safety Report 7069681-0 (Version None)
Quarter: 2010Q4

REPORT INFORMATION
  Report Type: 
  Country: None (occurrence: None)
  Receive Date: 20101028
  Receipt Date: 20100625
  Transmission Date: 20110411
  Serious: No
  Sender: FDA-Public Use
  Company Number: US-WYE-H15214310

PATIENT
  Sex: Female
  Weight: 136.2 kg

DRUGS (11)
  1. EFFEXOR [Suspect]
     Indication: DEPRESSION
     Dates: start: 19990101
  2. EFFEXOR [Suspect]
     Dosage: MISSED A DOSE ON AN UNSPECIFIED DATE
  3. EFFEXOR [Suspect]
     Dates: start: 20100514
  4. TOPROL-XL [Concomitant]
  5. WELLBUTRIN [Suspect]
     Indication: DEPRESSION
     Dates: start: 20100301, end: 20100301
  6. WELLBUTRIN [Suspect]
     Dates: start: 20100301, end: 20100514
  7. EXCEDRIN (MIGRAINE) [Concomitant]
  8. LOVASTATIN [Concomitant]
  9. PRISTIQ [Suspect]
     Indication: DEPRESSION
     Dates: start: 20100514
  10. VERAPAMIL [Concomitant]
  11. PREVACID [Concomitant]

REACTIONS (8)
  - CONDITION AGGRAVATED [None]
  - CRYING [None]
  - DEPRESSION [None]
  - DRUG EFFECT DECREASED [None]
  - DRUG INEFFECTIVE [None]
  - DRUG WITHDRAWAL SYNDROME [None]
  - MENSTRUATION IRREGULAR [None]
  - MIGRAINE [None]
